FAERS Safety Report 4667761-8 (Version None)
Quarter: 2005Q2

REPORT INFORMATION
  Report Type: 
  Country: None (occurrence: None)
  Receive Date: 20050520
  Receipt Date: 20050516
  Transmission Date: 20051028
  Serious: Yes (Death)
  Sender: FDA-Public Use
  Company Number: US-GLAXOSMITHKLINE-A0559031B

PATIENT

DRUGS (2)
  1. ZOFRAN [Suspect]
     Indication: NAUSEA
     Dates: start: 20040901, end: 20040101
  2. REGLAN [Suspect]
     Indication: NAUSEA
     Dates: start: 20040901, end: 20040101

REACTIONS (2)
  - DRUG EXPOSURE DURING PREGNANCY [None]
  - DRUG INTERACTION [None]
